FAERS Safety Report 7687034-9 (Version None)
Quarter: 2011Q3

REPORT INFORMATION
  Report Type: 
  Country: None (occurrence: None)
  Receive Date: 20110816
  Receipt Date: 20110812
  Transmission Date: 20111222
  Serious: Yes (Hospitalization)
  Sender: FDA-Public Use
  Company Number: US-BRISTOL-MYERS SQUIBB COMPANY-15897051

PATIENT
  Age: 63 Year
  Sex: Male

DRUGS (6)
  1. LYRICA [Concomitant]
     Dates: start: 20100901
  2. ZOLPIDEM [Concomitant]
     Dates: start: 20080101
  3. NAPROXEN (ALEVE) [Concomitant]
  4. SYNTHROID [Concomitant]
     Dates: start: 20110215
  5. IPILIMUMAB [Suspect]
     Indication: MALIGNANT MELANOMA
     Route: 042
     Dates: start: 20100902, end: 20110419
  6. OMEPRAZOLE [Concomitant]
     Dates: start: 20010101

REACTIONS (2)
  - DEHYDRATION [None]
  - COLITIS [None]
